FAERS Safety Report 5094781-4 (Version None)
Quarter: 2006Q3

REPORT INFORMATION
  Report Type: 
  Country: None (occurrence: None)
  Receive Date: 20060731
  Receipt Date: 20060413
  Transmission Date: 20061208
  Serious: No
  Sender: FDA-Public Use
  Company Number: 2006PV012049

PATIENT
  Age: 51 Year
  Sex: Female
  Weight: 53.5244 kg

DRUGS (2)
  1. BYETTA [Suspect]
     Indication: DIABETES MELLITUS
     Dosage: 10 MCG;BID;SC, SEE IMAGE
     Route: 058
     Dates: start: 20060201, end: 20060301
  2. BYETTA [Suspect]
     Indication: DIABETES MELLITUS
     Dosage: 10 MCG;BID;SC, SEE IMAGE
     Route: 058
     Dates: start: 20060301

REACTIONS (2)
  - BLOOD GLUCOSE INCREASED [None]
  - VOMITING [None]
